FAERS Safety Report 8298554-0 (Version None)
Quarter: 2012Q2

REPORT INFORMATION
  Report Type: 
  Country: None (occurrence: None)
  Receive Date: 20120419
  Receipt Date: 20110727
  Transmission Date: 20120825
  Serious: No
  Sender: FDA-Public Use
  Company Number: US-ABBOTT-10P-163-0690320-00

PATIENT
  Sex: Female
  Weight: 34.958 kg

DRUGS (3)
  1. LUPRON DEPOT-PED [Suspect]
     Indication: PRECOCIOUS PUBERTY
     Dosage: PED
     Dates: start: 20101001
  2. LUPRON DEPOT-PED [Suspect]
     Indication: PRECOCIOUS PUBERTY
     Dates: start: 20101101
  3. ADDERALL 5 [Concomitant]
     Indication: ATTENTION DEFICIT/HYPERACTIVITY DISORDER

REACTIONS (5)
  - MOOD SWINGS [None]
  - ABNORMAL BEHAVIOUR [None]
  - AGGRESSION [None]
  - DRUG DOSE OMISSION [None]
  - PERSONALITY CHANGE [None]
